FAERS Safety Report 7983060-0 (Version None)
Quarter: 2011Q4

REPORT INFORMATION
  Report Type: 
  Country: None (occurrence: None)
  Receive Date: 20111215
  Receipt Date: 20111206
  Transmission Date: 20120403
  Serious: Yes (Other)
  Sender: FDA-Public Use
  Company Number: GB-ABBOTT-11P-167-0881579-00

PATIENT
  Age: 47 Year
  Sex: Male

DRUGS (3)
  1. VALPROIC ACID [Suspect]
     Indication: BIPOLAR DISORDER
     Route: 048
  2. VALPROIC ACID [Suspect]
     Route: 048
     Dates: start: 20111130, end: 20111130
  3. RISPERIDONE [Concomitant]
     Indication: PRODUCT USED FOR UNKNOWN INDICATION

REACTIONS (4)
  - DRUG LEVEL ABOVE THERAPEUTIC [None]
  - OBSTRUCTIVE AIRWAYS DISORDER [None]
  - CONVULSION [None]
  - INTENTIONAL OVERDOSE [None]
